FAERS Safety Report 6139041-5 (Version None)
Quarter: 2009Q1

REPORT INFORMATION
  Report Type: 
  Country: None (occurrence: None)
  Receive Date: 20090331
  Receipt Date: 20090324
  Transmission Date: 20090719
  Serious: Yes (Other)
  Sender: FDA-Public Use
  Company Number: US-AMGEN-QUU340063

PATIENT
  Sex: Female

DRUGS (2)
  1. KINERET [Suspect]
     Indication: JUVENILE ARTHRITIS
  2. UNSPECIFIED STEROIDS [Concomitant]

REACTIONS (5)
  - CHEST PAIN [None]
  - ERYTHEMA [None]
  - PRURITUS [None]
  - SOMNOLENCE [None]
  - URTICARIA [None]
